FAERS Safety Report 8366295-7 (Version None)
Quarter: 2012Q1

REPORT INFORMATION
  Report Type: 
  Country: None (occurrence: None)
  Receive Date: 20120323
  Receipt Date: 20110413
  Transmission Date: 20120608
  Serious: Yes (Other)
  Sender: FDA-Public Use
  Company Number: 163-21880-11041674

PATIENT
  Age: 67 Year
  Sex: Female
  Weight: 57.6 kg

DRUGS (8)
  1. IBUPROFEN [Concomitant]
  2. PROCRIT [Concomitant]
  3. CALCIUM (CALCIUM) (UNKNOWN)  X [Concomitant]
  4. REVLIMID [Suspect]
     Indication: MULTIPLE MYELOMA
     Dosage: 25 MGT, QD, X21 DAYS, PO
     Route: 048
     Dates: start: 20100928
  5. DEXAMETHASONE [Concomitant]
  6. TRAMADOL HCL [Concomitant]
  7. BENICAR (OLMESARTAN MEDOXOMIL) (UNKNOWN) [Concomitant]
  8. ZOMETA [Concomitant]

REACTIONS (1)
  - ANAEMIA [None]
